FAERS Safety Report 7885355-8 (Version None)
Quarter: 2011Q4

REPORT INFORMATION
  Report Type: 
  Country: None (occurrence: None)
  Receive Date: 20111102
  Receipt Date: 20111026
  Transmission Date: 20120403
  Serious: Yes (Other)
  Sender: FDA-Public Use
  Company Number: CA-AMGEN-CANSP2011055741

PATIENT

DRUGS (4)
  1. PLAQUENIL [Suspect]
     Dosage: 200 MG, UNK
  2. METHOTREXATE [Suspect]
     Dosage: UNK
  3. ENBREL [Suspect]
     Indication: PRODUCT USED FOR UNKNOWN INDICATION
     Dosage: UNK
  4. ARAVA [Suspect]
     Dosage: 20 MG, UNK

REACTIONS (4)
  - COLON CANCER [None]
  - LUNG NEOPLASM MALIGNANT [None]
  - MALIGNANT MELANOMA [None]
  - BREAST CANCER [None]
